FAERS Safety Report 4367008-6 (Version None)
Quarter: 2004Q2

REPORT INFORMATION
  Report Type: 
  Country: None (occurrence: None)
  Receive Date: 20040527
  Receipt Date: 20040527
  Transmission Date: 20050107
  Serious: Yes (Hospitalization, Disabling)
  Sender: FDA-Public Use
  Company Number: None

PATIENT
  Age: 61 Year
  Sex: Female
  Weight: 81.6475 kg

DRUGS (1)
  1. TOPROL-XL [Suspect]
     Indication: BLOOD DISORDER
     Dosage: 1 TAB A DAY
     Dates: start: 20040426, end: 20040510

REACTIONS (1)
  - BLINDNESS TRANSIENT [None]
